FAERS Safety Report 23080307 (Version 2)
Quarter: 2024Q1

REPORT INFORMATION
  Report Type: Spontaneous
  Country: US (occurrence: US)
  Receive Date: 20231018
  Receipt Date: 20240117
  Transmission Date: 20240410
  Serious: Yes (Other)
  Sender: FDA-Public Use
  Company Number: US-JNJFOC-20231019773

PATIENT
  Sex: Male

DRUGS (1)
  1. SIMPONI [Suspect]
     Active Substance: GOLIMUMAB
     Indication: Rheumatoid arthritis
     Route: 058

REACTIONS (4)
  - Heart valve replacement [Recovering/Resolving]
  - Brain fog [Recovering/Resolving]
  - Incontinence [Recovering/Resolving]
  - Diarrhoea [Recovering/Resolving]
